FAERS Safety Report 5963186-3 (Version None)
Quarter: 2008Q4

REPORT INFORMATION
  Report Type: 
  Country: None (occurrence: None)
  Receive Date: 20081120
  Receipt Date: 20081120
  Transmission Date: 20090506
  Serious: Yes (Hospitalization)
  Sender: FDA-Public Use
  Company Number: None

PATIENT
  Age: 85 Year
  Sex: Male

DRUGS (2)
  1. WARFARIN SODIUM [Suspect]
     Indication: AORTIC VALVE REPLACEMENT
     Dosage: 3 MG EVERY DAY PO
     Route: 048
     Dates: start: 20010901
  2. ENOXAPARIN SODIUM [Suspect]
     Indication: AORTIC VALVE REPLACEMENT
     Dosage: 80 MG BID SQ
     Route: 058
     Dates: start: 20080903, end: 20080918

REACTIONS (4)
  - ARTERIOVENOUS GRAFT SITE HAEMORRHAGE [None]
  - HAEMATEMESIS [None]
  - HAEMORRHAGIC DIATHESIS [None]
  - PUNCTURE SITE HAEMORRHAGE [None]
